FAERS Safety Report 9845274 (Version 2)
Quarter: 2014Q1

REPORT INFORMATION
  Report Type: Spontaneous
  Country: FR (occurrence: None)
  Receive Date: 20140122
  Receipt Date: 20140210
  Transmission Date: 20141002
  Serious: Yes (Hospitalization, Other)
  Sender: FDA-Public Use
  Company Number: SYM-2014-14979

PATIENT
  Age: 75 Year
  Sex: Male
  Weight: 56 kg

DRUGS (1)
  1. TIMOPTOL LP [Suspect]
     Indication: HYPERTONIA
     Dosage: 1 GTT, 1 IN 1 D, OPTHALMIC
     Route: 047
     Dates: start: 2012

REACTIONS (3)
  - Memory impairment [None]
  - Condition aggravated [None]
  - Cerebral atrophy [None]
